FAERS Safety Report 5557249-4 (Version None)
Quarter: 2007Q4

REPORT INFORMATION
  Report Type: 
  Country: None (occurrence: None)
  Receive Date: 20071214
  Receipt Date: 20071016
  Transmission Date: 20080405
  Serious: No
  Sender: FDA-Public Use
  Company Number: US-AMGEN-KDL243144

PATIENT
  Sex: Female
  Weight: 64.9 kg

DRUGS (1)
  1. ENBREL [Suspect]
     Indication: PSORIASIS
     Route: 058
     Dates: start: 20070711

REACTIONS (2)
  - BLEPHAROSPASM [None]
  - UPPER RESPIRATORY TRACT INFECTION [None]
